FAERS Safety Report 5135232-0 (Version None)
Quarter: 2006Q4

REPORT INFORMATION
  Report Type: 
  Country: None (occurrence: None)
  Receive Date: 20061026
  Receipt Date: 20061016
  Transmission Date: 20070319
  Serious: Yes (Hospitalization, Other)
  Sender: FDA-Public Use
  Company Number: US-JNJFOC-20061004868

PATIENT
  Age: 30 Year
  Sex: Female

DRUGS (2)
  1. FENTANYL [Suspect]
     Indication: INTENTIONAL DRUG MISUSE
     Route: 065
  2. HEROIN [Suspect]
     Indication: INTENTIONAL DRUG MISUSE
     Route: 051

REACTIONS (2)
  - INTENTIONAL DRUG MISUSE [None]
  - RESPIRATORY ARREST [None]
